FAERS Safety Report 16241692 (Version 3)
Quarter: 2019Q2

REPORT INFORMATION
  Report Type: Spontaneous
  Country: US (occurrence: US)
  Receive Date: 20190426
  Receipt Date: 20190520
  Transmission Date: 20190711
  Serious: Yes (Hospitalization, Other)
  Sender: FDA-Public Use
  Company Number: US-ALEXION-A201906259

PATIENT
  Age: 64 Year
  Sex: Female
  Weight: 51.3 kg

DRUGS (2)
  1. SOLIRIS [Suspect]
     Active Substance: ECULIZUMAB
     Indication: PAROXYSMAL NOCTURNAL HAEMOGLOBINURIA
     Dosage: 900 MG, Q2W
     Route: 065
  2. ARANESP [Concomitant]
     Active Substance: DARBEPOETIN ALFA
     Indication: HAEMOGLOBIN DECREASED
     Dosage: 200 MCG, Q2W
     Route: 065
     Dates: start: 201602, end: 201812

REACTIONS (12)
  - Haemolysis [Unknown]
  - Gastrointestinal disorder [Unknown]
  - Haematocrit decreased [Unknown]
  - Pneumonia [Unknown]
  - Osteoporosis [Unknown]
  - Haemoglobin decreased [Unknown]
  - Pyrexia [Recovered/Resolved]
  - Urine leukocyte esterase positive [Unknown]
  - Gallbladder disorder [Unknown]
  - Sepsis [Unknown]
  - Nausea [Unknown]
  - Asthenia [Not Recovered/Not Resolved]

NARRATIVE: CASE EVENT DATE: 20190416
